FAERS Safety Report 9464190 (Version 2)
Quarter: 2013Q3

REPORT INFORMATION
  Report Type: Spontaneous
  Country: FR (occurrence: FR)
  Receive Date: 20130819
  Receipt Date: 20130819
  Transmission Date: 20140515
  Serious: Yes (Hospitalization)
  Sender: FDA-Public Use
  Company Number: FR-PFIZER INC-2013212543

PATIENT
  Age: 84 Year
  Sex: Female

DRUGS (9)
  1. CELEBREX [Suspect]
     Indication: ARTHRALGIA
     Dosage: UNK
     Route: 048
     Dates: start: 20120725, end: 20120812
  2. COAPROVEL [Suspect]
     Indication: HYPERTENSION
     Dosage: UNK
     Route: 048
  3. PAROXETINE [Concomitant]
     Indication: DEPRESSION
     Dosage: UNK
     Route: 048
  4. ALDACTONE [Concomitant]
     Indication: HYPERTENSION
     Dosage: 75 MG, 1X/DAY
     Route: 048
  5. LYSANXIA [Concomitant]
     Indication: DEPRESSION
     Dosage: UNK
     Route: 048
  6. STRUCTUM [Concomitant]
     Indication: OSTEOARTHRITIS
     Dosage: 500 MG, 1X/DAY
     Route: 048
  7. PRAVASTATIN SODIUM [Concomitant]
     Indication: DYSLIPIDAEMIA
     Dosage: UNK
     Route: 048
  8. EFFERALGAN [Concomitant]
     Dosage: UNK
     Route: 048
     Dates: end: 20120812
  9. VESICARE [Concomitant]
     Dosage: UNK
     Route: 048

REACTIONS (2)
  - Renal failure [Recovered/Resolved]
  - Rash erythematous [Recovered/Resolved]
